FAERS Safety Report 9842894 (Version 2)
Quarter: 2014Q2

REPORT INFORMATION
  Report Type: Spontaneous
  Country: US (occurrence: US)
  Receive Date: 20140124
  Receipt Date: 20140417
  Transmission Date: 20141212
  Serious: No
  Sender: FDA-Public Use
  Company Number: US-PFIZER INC-2014020243

PATIENT
  Age: 56 Year
  Sex: Male

DRUGS (7)
  1. XELJANZ [Suspect]
     Indication: RHEUMATOID ARTHRITIS
     Dosage: 5 MG, 2X/DAY
     Route: 048
  2. FOLIC ACID [Concomitant]
     Dosage: UNK
  3. PREDNISONE [Concomitant]
     Dosage: 10 MG, UNK
  4. LEFLUNOMIDE [Concomitant]
     Dosage: 10 MG, UNK
  5. DIAZEPAM [Concomitant]
     Dosage: 10 MG, UNK
  6. TRAMADOL HYDROCHLORIDE [Concomitant]
     Dosage: 50 MG, UNK
  7. HYDROCODONE GG [Concomitant]
     Dosage: 2.5-300, UNK

REACTIONS (2)
  - Drug effect incomplete [Unknown]
  - Headache [Unknown]
